FAERS Safety Report 12707301 (Version 2)
Quarter: 2017Q3

REPORT INFORMATION
  Report Type: Spontaneous
  Country: US (occurrence: US)
  Receive Date: 20160901
  Receipt Date: 20170823
  Transmission Date: 20171127
  Serious: No
  Sender: FDA-Public Use
  Company Number: US-THE MEDICINES COMPANY-US-MDCO-16-00178

PATIENT
  Age: 40 Year
  Sex: Male
  Weight: 92.16 kg

DRUGS (7)
  1. ORBACTIV [Suspect]
     Active Substance: ORITAVANCIN
     Indication: STREPTOCOCCAL INFECTION
     Dosage: 200 ML/HOUR
     Route: 041
     Dates: start: 20160518, end: 20160518
  2. ORBACTIV [Suspect]
     Active Substance: ORITAVANCIN
     Dosage: 125 ML/HOUR
     Route: 041
     Dates: start: 20160518, end: 20160518
  3. ORBACTIV [Suspect]
     Active Substance: ORITAVANCIN
     Indication: CELLULITIS
     Dosage: NOT REPORTED
     Dates: start: 20160503
  4. ROCEPHIN [Concomitant]
     Active Substance: CEFTRIAXONE SODIUM
     Indication: CELLULITIS STREPTOCOCCAL
     Dosage: NOT REPORTED
  5. ORBACTIV [Suspect]
     Active Substance: ORITAVANCIN
     Route: 041
  6. ANTIBIOTICS [Concomitant]
     Active Substance: UNSPECIFIED INGREDIENT
     Indication: CELLULITIS STREPTOCOCCAL
     Dosage: NOT REPORTED
     Route: 042
  7. STERILE WATER [Concomitant]
     Active Substance: WATER
     Indication: PRODUCT USED FOR UNKNOWN INDICATION
     Dates: start: 20160518

REACTIONS (3)
  - Back pain [Recovering/Resolving]
  - Drug ineffective [Unknown]
  - Groin pain [Unknown]

NARRATIVE: CASE EVENT DATE: 20160518
